FAERS Safety Report 7526728-2 (Version None)
Quarter: 2011Q2

REPORT INFORMATION
  Report Type: 
  Country: None (occurrence: None)
  Receive Date: 20110606
  Receipt Date: 20110606
  Transmission Date: 20111010
  Serious: Yes (Other)
  Sender: FDA-Public Use
  Company Number: US-PFIZER INC-2011119854

PATIENT
  Sex: Male
  Weight: 76.19 kg

DRUGS (1)
  1. ZOLOFT [Suspect]
     Indication: BIPOLAR DISORDER
     Dosage: 200 MG, DAILY
     Dates: start: 20050101

REACTIONS (2)
  - DEPRESSION [None]
  - ANGER [None]
